FAERS Safety Report 6216980-8 (Version None)
Quarter: 2009Q2

REPORT INFORMATION
  Report Type: 
  Country: None (occurrence: None)
  Receive Date: 20090604
  Receipt Date: 20090402
  Transmission Date: 20091009
  Serious: Yes (Other)
  Sender: FDA-Public Use
  Company Number: AVE_00472_2009

PATIENT
  Sex: Female

DRUGS (3)
  1. KEFLEX [Suspect]
     Indication: SMOKING CESSATION THERAPY
     Dosage: 1 DF 1X/8 1X.24 HOURS; TRANSDERMAL
     Route: 062
     Dates: start: 20090320, end: 20090402
  2. NICOTINE PATCH (NOVARTIS) 21 MG [Suspect]
     Indication: SMOKING CESSATION THERAPY
     Dosage: DF; TRANSDERMAL
     Route: 062
     Dates: start: 20090403
  3. KEFLEX [Suspect]
     Indication: URINARY TRACT INFECTION
     Dosage: 1 DF 1X/8 HOURS, ORAL
     Route: 048
     Dates: start: 20090318

REACTIONS (8)
  - CHEST PAIN [None]
  - CHOKING SENSATION [None]
  - HEADACHE [None]
  - INSOMNIA [None]
  - MUSCLE TWITCHING [None]
  - PALPITATIONS [None]
  - SWOLLEN TONGUE [None]
  - URINARY INCONTINENCE [None]
